FAERS Safety Report 9714083 (Version 1)
Quarter: 2013Q4

REPORT INFORMATION
  Report Type: Spontaneous
  Country: CH (occurrence: CH)
  Receive Date: 20131126
  Receipt Date: 20131126
  Transmission Date: 20140711
  Serious: Yes (Hospitalization)
  Sender: FDA-Public Use
  Company Number: CH-PFIZER INC-2013333601

PATIENT
  Age: 43 Year
  Sex: Male

DRUGS (12)
  1. DALACIN C [Suspect]
     Indication: PROPHYLAXIS
     Dosage: 300 MG, 3X/DAY
     Route: 048
     Dates: start: 20130919, end: 20130923
  2. IRFEN [Suspect]
     Indication: PAIN
     Dosage: 400 MG, 3X/DAY
     Route: 048
     Dates: start: 20130919, end: 20130923
  3. FYCOMPA [Suspect]
     Indication: EPILEPSY
     Dosage: 2 MG, 1X/DAY
     Route: 048
     Dates: start: 20130905, end: 20130917
  4. FYCOMPA [Suspect]
     Dosage: 4 MG, 1X/DAY
     Route: 048
     Dates: start: 20130918, end: 20130923
  5. AUGMENTIN [Suspect]
     Indication: PROPHYLAXIS
     Dosage: 1-2 DOSES OF 2.2 G
     Route: 041
     Dates: start: 20130919, end: 20130919
  6. KEPPRA [Concomitant]
     Indication: EPILEPSY
     Dosage: 1 G, 2X/DAY
     Route: 048
  7. LAMICTAL [Concomitant]
     Indication: EPILEPSY
     Dosage: 300 MG, 2X/DAY
     Route: 048
  8. URBANYL [Concomitant]
     Indication: EPILEPSY
     Dosage: 10 MG, 3X/DAY
     Route: 048
  9. TOPAMAX [Concomitant]
     Indication: EPILEPSY
     Dosage: 200 MG, 2X/DAY
     Route: 048
     Dates: end: 20130904
  10. TOPAMAX [Concomitant]
     Dosage: 200 MG, 1X/DAY
     Route: 048
     Dates: start: 20130905, end: 20130917
  11. TOPAMAX [Concomitant]
     Dosage: UNKNOWN DOSAGE
     Dates: start: 20130923
  12. COAPROVEL [Concomitant]
     Indication: ESSENTIAL HYPERTENSION
     Dosage: 1 DF, 1X/DAY
     Dates: end: 20130923

REACTIONS (4)
  - Hypersensitivity [Recovered/Resolved]
  - Rash maculo-papular [Recovered/Resolved]
  - Malaise [Recovered/Resolved]
  - Hypotension [Recovered/Resolved]
